FAERS Safety Report 20877270 (Version 1)
Quarter: 2022Q2

REPORT INFORMATION
  Report Type: Spontaneous
  Country: GB (occurrence: GB)
  Receive Date: 20220526
  Receipt Date: 20220526
  Transmission Date: 20220721
  Serious: Yes (Other)
  Sender: FDA-Public Use
  Company Number: GB-MHRA-MED-202205201647535750-8BWDC

PATIENT
  Age: 22 Year
  Sex: Male
  Weight: 75 kg

DRUGS (1)
  1. CLARITHROMYCIN [Suspect]
     Active Substance: CLARITHROMYCIN
     Indication: Surgery
     Dosage: 500 MILLIGRAM, BID (1X 500MG TWICE PER DAY)
     Dates: start: 20220516, end: 20220520

REACTIONS (5)
  - Migraine [Recovered/Resolved]
  - Tunnel vision [Recovered/Resolved]
  - Migraine with aura [Recovered/Resolved]
  - Vision blurred [Recovered/Resolved]
  - Nausea [Recovered/Resolved]
